FAERS Safety Report 10052566 (Version 3)
Quarter: 2017Q1

REPORT INFORMATION
  Report Type: Other
  Country: US (occurrence: US)
  Receive Date: 20140402
  Receipt Date: 20170210
  Transmission Date: 20170428
  Serious: Yes (Other)
  Sender: FDA-Public Use
  Company Number: US-ACORDA-ACO_102636_2014

PATIENT
  Sex: Male
  Weight: 113.38 kg

DRUGS (5)
  1. LEVOTHYROXINE. [Concomitant]
     Active Substance: LEVOTHYROXINE
     Indication: PRODUCT USED FOR UNKNOWN INDICATION
     Dosage: 250 ?G, UNK
     Route: 065
     Dates: start: 1998
  2. LINOMIDE [Suspect]
     Active Substance: ROQUINIMEX
     Indication: MULTIPLE SCLEROSIS
     Dosage: UNK
     Route: 048
     Dates: start: 1996
  3. BACLOFEN. [Concomitant]
     Active Substance: BACLOFEN
     Indication: PRODUCT USED FOR UNKNOWN INDICATION
     Dosage: UNK
     Route: 065
     Dates: start: 1995
  4. AMPYRA [Suspect]
     Active Substance: DALFAMPRIDINE
     Indication: GAIT DISTURBANCE
     Dosage: 10 MG, Q 12 HRS
     Route: 048
     Dates: start: 201107, end: 201401
  5. AMPYRA [Suspect]
     Active Substance: DALFAMPRIDINE
     Dosage: 10 MG, Q 12 HRS
     Route: 048
     Dates: start: 201402, end: 20150222

REACTIONS (11)
  - Peroneal nerve palsy [Unknown]
  - Coordination abnormal [Unknown]
  - Thyroid cancer recurrent [Unknown]
  - Asthenia [Unknown]
  - Balance disorder [Unknown]
  - Therapy cessation [Unknown]
  - Headache [Unknown]
  - Withdrawal syndrome [None]
  - Gait disturbance [Recovered/Resolved]
  - Abasia [Unknown]
  - Quality of life decreased [Recovered/Resolved]

NARRATIVE: CASE EVENT DATE: 2014
